FAERS Safety Report 10532661 (Version 3)
Quarter: 2015Q1

REPORT INFORMATION
  Report Type: Report from Study
  Country: US (occurrence: US)
  Receive Date: 20141021
  Receipt Date: 20150114
  Transmission Date: 20150720
  Serious: Yes (Death, Hospitalization)
  Sender: FDA-Public Use
  Company Number: US-ROCHE-1476709

PATIENT
  Age: 72 Year
  Sex: Female
  Weight: 86 kg

DRUGS (7)
  1. CARBOPLATIN. [Suspect]
     Active Substance: CARBOPLATIN
     Indication: OVARIAN EPITHELIAL CANCER
     Dosage: AUC 6 IP ON DAY 1
     Route: 033
     Dates: start: 20100827, end: 20100917
  2. DIOVAN [Suspect]
     Active Substance: VALSARTAN
     Indication: OVARIAN EPITHELIAL CANCER
     Route: 065
  3. PACLITAXEL. [Suspect]
     Active Substance: PACLITAXEL
     Indication: OVARIAN EPITHELIAL CANCER
     Dosage: DATE OF LAST DOSE PRIOR TO ABDOMINAL INFECTION: 23/NOV/2010?CYCLE 4, DAY 8
     Route: 042
     Dates: start: 20100827
  4. CARBOPLATIN. [Suspect]
     Active Substance: CARBOPLATIN
     Dosage: CYCLE 4, DAY 1?DATE OF LAST DOSE PRIOR TO ABDOMINAL INFECTION: 16/NOV/2010
     Route: 042
     Dates: start: 20100810
  5. AMIODARONE [Suspect]
     Active Substance: AMIODARONE
     Indication: OVARIAN EPITHELIAL CANCER
     Route: 065
     Dates: start: 20101029
  6. BEVACIZUMAB [Suspect]
     Active Substance: BEVACIZUMAB
     Indication: OVARIAN EPITHELIAL CANCER
     Dosage: BEGINNING WITH CYCLE 2?DATE OF LAST DOSE PRIOR TO ABDOMINAL INFECTION: 08/OCT/2010
     Route: 042
     Dates: start: 20100827
  7. LOVENOX [Concomitant]
     Active Substance: ENOXAPARIN SODIUM
     Route: 065
     Dates: start: 20101029

REACTIONS (2)
  - Death [Fatal]
  - Abdominal infection [Recovered/Resolved]

NARRATIVE: CASE EVENT DATE: 20101028
